FAERS Safety Report 24857950 (Version 1)
Quarter: 2025Q1

REPORT INFORMATION
  Report Type: Spontaneous
  Country: SE (occurrence: SE)
  Receive Date: 20250117
  Receipt Date: 20250117
  Transmission Date: 20250408
  Serious: Yes (Hospitalization)
  Sender: EISAI
  Company Number: SE-Eisai-EC-2025-182063

PATIENT
  Age: 76 Year
  Sex: Female

DRUGS (6)
  1. LENVATINIB [Suspect]
     Active Substance: LENVATINIB
     Indication: Endometrial cancer metastatic
     Route: 048
     Dates: start: 202306
  2. LENVATINIB [Suspect]
     Active Substance: LENVATINIB
     Indication: Metastases to liver
     Route: 048
     Dates: start: 2023
  3. LENVATINIB [Suspect]
     Active Substance: LENVATINIB
     Indication: Metastases to lung
  4. KEYTRUDA [Suspect]
     Active Substance: PEMBROLIZUMAB
     Indication: Endometrial cancer metastatic
     Route: 041
     Dates: start: 202306
  5. KEYTRUDA [Suspect]
     Active Substance: PEMBROLIZUMAB
     Indication: Metastases to liver
  6. KEYTRUDA [Suspect]
     Active Substance: PEMBROLIZUMAB
     Indication: Metastases to lung

REACTIONS (13)
  - Fall [Unknown]
  - Confusional state [Recovered/Resolved]
  - Fatigue [Recovered/Resolved]
  - Dysphonia [Recovered/Resolved]
  - Memory impairment [Recovered/Resolved]
  - Constipation [Unknown]
  - Cognitive disorder [Recovered/Resolved]
  - Amnesia [Recovered/Resolved]
  - Apraxia [Recovered/Resolved]
  - Aphasia [Recovered/Resolved]
  - Blood pressure increased [Unknown]
  - Thrombocytopenia [Unknown]
  - Transient ischaemic attack [Unknown]

NARRATIVE: CASE EVENT DATE: 20230101
